FAERS Safety Report 15825052 (Version 1)
Quarter: 2019Q1

REPORT INFORMATION
  Report Type: Spontaneous
  Country: US (occurrence: US)
  Receive Date: 20190115
  Receipt Date: 20190115
  Transmission Date: 20190417
  Serious: No
  Sender: FDA-Public Use
  Company Number: US-PFIZER INC-2019018110

PATIENT
  Age: 71 Year
  Sex: Male

DRUGS (1)
  1. BOSULIF [Suspect]
     Active Substance: BOSUTINIB MONOHYDRATE
     Dosage: 300 MG, 1X/DAY
     Dates: start: 20181221

REACTIONS (5)
  - White blood cell count decreased [Unknown]
  - Diarrhoea [Recovered/Resolved]
  - Rotator cuff syndrome [Unknown]
  - Dizziness [Recovered/Resolved]
  - Fatigue [Unknown]
